FAERS Safety Report 4905401-0 (Version None)
Quarter: 2006Q1

REPORT INFORMATION
  Report Type: 
  Country: None (occurrence: None)
  Receive Date: 20060208
  Receipt Date: 20051010
  Transmission Date: 20060701
  Serious: Yes (Other)
  Sender: FDA-Public Use
  Company Number: US-MERCK-0510USA06496

PATIENT
  Age: 65 Year
  Sex: Female

DRUGS (3)
  1. VIOXX [Suspect]
     Indication: PAIN
     Route: 048
     Dates: start: 20010702
  2. PREVACID [Concomitant]
     Route: 065
  3. ACIPHEX [Concomitant]
     Route: 065

REACTIONS (13)
  - ACTINIC KERATOSIS [None]
  - AGITATION [None]
  - BLINDNESS TRANSIENT [None]
  - BLOOD PRESSURE INCREASED [None]
  - CEREBROVASCULAR ACCIDENT [None]
  - DERMATITIS CONTACT [None]
  - DIARRHOEA [None]
  - HEADACHE [None]
  - OPTIC ISCHAEMIC NEUROPATHY [None]
  - PAIN [None]
  - PAPILLITIS [None]
  - SCOTOMA [None]
  - VERTIGO [None]
